FAERS Safety Report 5954235-7 (Version None)
Quarter: 2008Q4

REPORT INFORMATION
  Report Type: 
  Country: None (occurrence: None)
  Receive Date: 20081117
  Receipt Date: 20081104
  Transmission Date: 20090506
  Serious: Yes (Death)
  Sender: FDA-Public Use
  Company Number: US-JNJFOC-20050901263

PATIENT
  Sex: Female

DRUGS (16)
  1. REMICADE [Suspect]
     Route: 042
  2. REMICADE [Suspect]
     Indication: RHEUMATOID ARTHRITIS
     Route: 042
  3. ADVAIR DISKUS 100/50 [Concomitant]
  4. QVAR 40 [Concomitant]
  5. ALBUTEROL [Concomitant]
  6. METHOTREXATE [Concomitant]
  7. VICODIN [Concomitant]
  8. PREDNISONE TAB [Concomitant]
  9. ISONIAZID [Concomitant]
  10. ZYRTEC [Concomitant]
  11. BECLOMETHASONE DIPROPIONATE [Concomitant]
  12. FOLATE [Concomitant]
  13. VITAMIN B6 [Concomitant]
  14. FENTANYL [Concomitant]
  15. ATARAX [Concomitant]
  16. ADDERALL 10 [Concomitant]

REACTIONS (1)
  - LATENT TUBERCULOSIS [None]
